FAERS Safety Report 8309550-9 (Version None)
Quarter: 2012Q2

REPORT INFORMATION
  Report Type: 
  Country: None (occurrence: None)
  Receive Date: 20120425
  Receipt Date: 20120420
  Transmission Date: 20120825
  Serious: No
  Sender: FDA-Public Use
  Company Number: US-PFIZER INC-2012098484

PATIENT
  Sex: Male
  Weight: 77.098 kg

DRUGS (1)
  1. LORATADINE AND PSEUDOEPHEDRINE SULFATE [Suspect]
     Indication: HYPERSENSITIVITY
     Dosage: ONE AND A HALF TABLET
     Route: 048
     Dates: start: 20120419

REACTIONS (5)
  - RASH [None]
  - VOMITING [None]
  - PRURITUS [None]
  - PYREXIA [None]
  - BACK PAIN [None]
